FAERS Safety Report 14176638 (Version 1)
Quarter: 2017Q4

REPORT INFORMATION
  Report Type: Spontaneous
  Country: US (occurrence: US)
  Receive Date: 20171109
  Receipt Date: 20171109
  Transmission Date: 20180321
  Serious: Yes (Life-Threatening, Hospitalization, Disabling, Other)
  Sender: FDA-Public Use
  Company Number: None

PATIENT
  Age: 29 Year
  Sex: Male
  Weight: 74.25 kg

DRUGS (1)
  1. CORTIZONE 10 [Suspect]
     Active Substance: HYDROCORTISONE

REACTIONS (12)
  - Bedridden [None]
  - Renal failure [None]
  - Neuralgia [None]
  - Skin erosion [None]
  - Drug withdrawal syndrome [None]
  - Infection [None]
  - Pruritus [None]
  - Dependence [None]
  - Hepatic failure [None]
  - Gastrointestinal perforation [None]
  - Insomnia [None]
  - Emotional distress [None]

NARRATIVE: CASE EVENT DATE: 20100901
